FAERS Safety Report 17966348 (Version 6)
Quarter: 2020Q3

REPORT INFORMATION
  Report Type: Spontaneous
  Country: US (occurrence: US)
  Receive Date: 20200630
  Receipt Date: 20200924
  Transmission Date: 20201103
  Serious: Yes (Hospitalization)
  Sender: FDA-Public Use
  Company Number: US-SEATTLE GENETICS-2020SGN02690

PATIENT
  Sex: Female

DRUGS (3)
  1. TUKYSA [Suspect]
     Active Substance: TUCATINIB
     Indication: BREAST CANCER FEMALE
     Dosage: UNK UNK, BID
  2. ABILIFY [Suspect]
     Active Substance: ARIPIPRAZOLE
  3. VALIUM [Suspect]
     Active Substance: DIAZEPAM

REACTIONS (11)
  - Diarrhoea [Unknown]
  - Pneumonia [Unknown]
  - Drug interaction [Unknown]
  - Chest wall abscess [Unknown]
  - Streptococcal infection [Unknown]
  - Weight decreased [Unknown]
  - Vomiting [Recovering/Resolving]
  - Protein total abnormal [Unknown]
  - Pyrexia [Unknown]
  - Illness [Recovering/Resolving]
  - Product dose omission issue [Unknown]
